FAERS Safety Report 15450707 (Version 1)
Quarter: 2018Q4

REPORT INFORMATION
  Report Type: Spontaneous
  Country: IT (occurrence: IT)
  Receive Date: 20181001
  Receipt Date: 20181001
  Transmission Date: 20190204
  Serious: Yes (Other)
  Sender: FDA-Public Use
  Company Number: PHHY2018IT109881

PATIENT
  Age: 20 Year
  Sex: Male

DRUGS (4)
  1. PAZOPANIB [Suspect]
     Active Substance: PAZOPANIB
     Indication: OSTEOSARCOMA METASTATIC
     Dosage: 800 MG, QD
     Route: 065
     Dates: start: 201705
  2. PAZOPANIB [Suspect]
     Active Substance: PAZOPANIB
     Dosage: 800 MG, QD
     Route: 065
     Dates: start: 201707
  3. PAZOPANIB [Suspect]
     Active Substance: PAZOPANIB
     Dosage: 600 MG, QD
     Route: 065
  4. PAZOPANIB [Suspect]
     Active Substance: PAZOPANIB
     Dosage: 400 MG, QD
     Route: 065
     Dates: end: 201802

REACTIONS (7)
  - Product use in unapproved indication [Unknown]
  - Pneumothorax [Recovered/Resolved]
  - Pneumothorax [Unknown]
  - Palmar-plantar erythrodysaesthesia syndrome [Unknown]
  - Loss of consciousness [Unknown]
  - Metastases to lung [Unknown]
  - Malignant neoplasm progression [Unknown]

NARRATIVE: CASE EVENT DATE: 201709
